FAERS Safety Report 5706966-1 (Version None)
Quarter: 2008Q2

REPORT INFORMATION
  Report Type: 
  Country: None (occurrence: None)
  Receive Date: 20080416
  Receipt Date: 20080414
  Transmission Date: 20081010
  Serious: Yes (Hospitalization, Disabling)
  Sender: FDA-Public Use
  Company Number: JP-BRISTOL-MYERS SQUIBB COMPANY-14150320

PATIENT
  Age: 46 Year
  Sex: Male
  Weight: 65 kg

DRUGS (15)
  1. CISPLATIN [Suspect]
     Indication: PLEURAL MESOTHELIOMA MALIGNANT
     Dosage: 8NOV7 DECREASED DOSE 50MG,INTERRUPT NOV7,13DEC7 RESTARTED,DEC7 INTERRUPT, RESTARTED 16JAN8 (25MG)
     Route: 042
     Dates: start: 20070904
  2. ALIMTA [Suspect]
     Indication: PLEURAL MESOTHELIOMA MALIGNANT
     Dosage: DECREASE DOSE 650MG 8NOV7,NOV7 INTERRUPT,13DEC7 RESTART,DEC7 INTERRUPT,16JAN8 RESTART,21FEB8 500MG
     Route: 042
     Dates: start: 20070904
  3. FOLIAMIN [Concomitant]
     Route: 048
     Dates: start: 20070827
  4. CYANOCOBALAMIN [Concomitant]
     Dosage: FORM = INJECTION
     Dates: start: 20070827, end: 20080119
  5. OMEPRAL [Concomitant]
     Dosage: FORM = TABS
  6. ALLOPURINOL [Concomitant]
     Dosage: FORM = TABS
  7. PHENOBAL [Concomitant]
     Route: 048
  8. CLARITHROMYCIN [Concomitant]
     Route: 048
  9. DEPAS [Concomitant]
     Route: 048
  10. GLYSENNID [Concomitant]
     Dosage: FORM = TAB
  11. TRYPTANOL [Concomitant]
     Dosage: FORM = TAB
     Dates: end: 20080124
  12. LENDORMIN [Concomitant]
     Dosage: FORM = TAB
     Dates: start: 20071114
  13. DUROTEP [Concomitant]
     Dosage: FORM = TABS
     Dates: start: 20071122
  14. LOXONIN [Concomitant]
     Route: 048
     Dates: start: 20071129
  15. CODEINE SUL TAB [Concomitant]
     Route: 048
     Dates: start: 20071227

REACTIONS (4)
  - ABDOMINAL PAIN UPPER [None]
  - ANAEMIA [None]
  - NEUTROPHIL COUNT DECREASED [None]
  - PNEUMONIA [None]
